FAERS Safety Report 20456157 (Version 1)
Quarter: 2022Q1

REPORT INFORMATION
  Report Type: Spontaneous
  Country: US (occurrence: US)
  Receive Date: 20220210
  Receipt Date: 20220210
  Transmission Date: 20220423
  Serious: No
  Sender: FDA-Public Use
  Company Number: US-BEH-2022142066

PATIENT
  Sex: Female

DRUGS (1)
  1. HIZENTRA [Suspect]
     Active Substance: HUMAN IMMUNOGLOBULIN G
     Indication: Chronic inflammatory demyelinating polyradiculoneuropathy
     Dosage: 26 GRAM, QW
     Route: 058
     Dates: start: 20220119

REACTIONS (4)
  - Pruritus [Recovered/Resolved]
  - Recalled product administered [Recovered/Resolved]
  - Erythema [Recovered/Resolved]
  - Recalled product administered [Recovered/Resolved]
